FAERS Safety Report 8170263-8 (Version None)
Quarter: 2012Q1

REPORT INFORMATION
  Report Type: 
  Country: None (occurrence: None)
  Receive Date: 20120228
  Receipt Date: 20120223
  Transmission Date: 20120608
  Serious: Yes (Death, Hospitalization)
  Sender: FDA-Public Use
  Company Number: PHHY2012MX015986

PATIENT
  Sex: Male

DRUGS (4)
  1. CAPTOPRIL [Concomitant]
     Indication: HYPERTENSION
     Dosage: 1 DF, DAILY
  2. LOSARTAN POTASSIUM [Concomitant]
     Indication: HYPERTENSION
     Dosage: 1 DF, DAILY
     Dates: end: 20110401
  3. ASPIRIN [Concomitant]
     Indication: BLOOD DISORDER
  4. EXFORGE [Suspect]
     Indication: HYPERTENSION
     Dosage: 1 DF (160 MG VALS AND 10 MG AMLO), DAILY
     Dates: start: 20110419, end: 20111122

REACTIONS (5)
  - PAIN IN EXTREMITY [None]
  - DYSPNOEA [None]
  - CEREBROVASCULAR ACCIDENT [None]
  - THROMBOSIS [None]
  - MALAISE [None]
